FAERS Safety Report 7384321-9 (Version None)
Quarter: 2011Q1

REPORT INFORMATION
  Report Type: 
  Country: None (occurrence: None)
  Receive Date: 20110330
  Receipt Date: 20110303
  Transmission Date: 20110831
  Serious: No
  Sender: FDA-Public Use
  Company Number: US-B.I. PHARMACEUTICALS,INC./RIDGEFIELD-2011-BP-02205BP

PATIENT
  Sex: Female

DRUGS (8)
  1. PRADAXA [Suspect]
     Indication: CEREBROVASCULAR ACCIDENT
  2. IRON [Concomitant]
  3. ACTONEL [Concomitant]
     Indication: OSTEOPOROSIS PROPHYLAXIS
     Dosage: 5 MG
     Dates: start: 20060101
  4. FLECAINIDE [Concomitant]
     Dosage: 100 MG
  5. RESTASIS [Concomitant]
     Indication: DRY EYE
     Dates: start: 20100501
  6. MULTIPLE VITAMINS [Concomitant]
  7. LOVAZA [Concomitant]
  8. PRADAXA [Suspect]
     Indication: ATRIAL FIBRILLATION
     Dosage: 300 MG
     Route: 048
     Dates: start: 20110104

REACTIONS (4)
  - SNEEZING [None]
  - LACRIMATION INCREASED [None]
  - NASOPHARYNGITIS [None]
  - RHINORRHOEA [None]
